FAERS Safety Report 7689205-4 (Version None)
Quarter: 2011Q3

REPORT INFORMATION
  Report Type: 
  Country: None (occurrence: None)
  Receive Date: 20110811
  Receipt Date: 20110729
  Transmission Date: 20111222
  Serious: Yes (Death, Hospitalization)
  Sender: FDA-Public Use
  Company Number: 2011MA010751

PATIENT
  Age: 69 Year
  Sex: Female

DRUGS (1)
  1. DIGOXIN [Suspect]
     Dosage: .125 MG; QD; O
     Route: 048
     Dates: start: 20070101, end: 20070829

REACTIONS (42)
  - MULTIPLE INJURIES [None]
  - CARDIAC ARREST [None]
  - HAEMOGLOBIN DECREASED [None]
  - TOXICITY TO VARIOUS AGENTS [None]
  - CARDIAC DISORDER [None]
  - MUSCULAR WEAKNESS [None]
  - CARBON DIOXIDE DECREASED [None]
  - RENAL FAILURE ACUTE [None]
  - SEPTIC SHOCK [None]
  - ANXIETY [None]
  - BLOOD POTASSIUM DECREASED [None]
  - BLOOD SODIUM DECREASED [None]
  - CARDIAC FAILURE CONGESTIVE [None]
  - VENTRICULAR ARRHYTHMIA [None]
  - NAUSEA [None]
  - VOMITING [None]
  - BACK PAIN [None]
  - MUCOSAL DRYNESS [None]
  - SKIN ULCER [None]
  - CONGESTIVE CARDIOMYOPATHY [None]
  - ECONOMIC PROBLEM [None]
  - ABDOMINAL PAIN [None]
  - DISORIENTATION [None]
  - DYSPNOEA [None]
  - BLOOD POTASSIUM INCREASED [None]
  - PAIN [None]
  - SKIN DISCOLOURATION [None]
  - OEDEMA PERIPHERAL [None]
  - ESCHAR [None]
  - HAEMATOCRIT DECREASED [None]
  - SENSATION OF HEAVINESS [None]
  - HYPERHIDROSIS [None]
  - BRADYCARDIA [None]
  - PERICARDIAL EFFUSION [None]
  - METABOLIC ACIDOSIS [None]
  - FALL [None]
  - CARDIOMEGALY [None]
  - RALES [None]
  - APNOEA [None]
  - RED BLOOD CELL COUNT DECREASED [None]
  - PLATELET COUNT INCREASED [None]
  - BLOOD CHLORIDE DECREASED [None]
